FAERS Safety Report 14997572 (Version 1)
Quarter: 2018Q2

REPORT INFORMATION
  Report Type: Spontaneous
  Country: FR (occurrence: FR)
  Receive Date: 20180611
  Receipt Date: 20180611
  Transmission Date: 20180711
  Serious: Yes (Hospitalization, Other)
  Sender: FDA-Public Use
  Company Number: FR-TEVA-2018-FR-905300

PATIENT
  Age: 76 Year
  Sex: Male
  Weight: 58 kg

DRUGS (13)
  1. MOVICOL [Suspect]
     Active Substance: POLYETHYLENE GLYCOL 3350\POTASSIUM CHLORIDE\SODIUM BICARBONATE\SODIUM CHLORIDE
     Route: 048
  2. PREVISCAN 20 MG [Concomitant]
     Active Substance: FLUINDIONE
     Route: 048
  3. HEMIGOXINE NATIVELLE 0,125 MG [Concomitant]
     Route: 048
  4. PRAZEPAM [Concomitant]
     Active Substance: PRAZEPAM
     Route: 048
     Dates: start: 20160924
  5. ZYMAD 80 000 UI, SOLUTION BUVABLE EN AMPOULE [Concomitant]
     Route: 048
  6. DIFFU K, G LULE [Suspect]
     Active Substance: POTASSIUM CHLORIDE
     Route: 048
  7. EDUCTYL ADULTES, SUPPOSITOIRE EFFERVESCENT [Concomitant]
     Active Substance: POTASSIUM BITARTRATE\SODIUM BICARBONATE
     Route: 054
  8. LASILIX SPECIAL 500 MG [Interacting]
     Active Substance: FUROSEMIDE
     Route: 048
     Dates: start: 20160924
  9. DOLIPRANE [Concomitant]
     Active Substance: ACETAMINOPHEN
     Route: 048
  10. LAMICTAL [Concomitant]
     Active Substance: LAMOTRIGINE
     Route: 048
  11. MIRTAZAPINE. [Suspect]
     Active Substance: MIRTAZAPINE
     Route: 048
     Dates: start: 20160924
  12. VENLAFAXINE [Suspect]
     Active Substance: VENLAFAXINE HYDROCHLORIDE
     Route: 048
  13. INSPRA [Interacting]
     Active Substance: EPLERENONE
     Route: 048
     Dates: start: 20160924

REACTIONS (4)
  - Hyperkalaemia [Recovered/Resolved]
  - Drug interaction [Unknown]
  - Dehydration [Recovered/Resolved]
  - Hyponatraemia [Recovered/Resolved]

NARRATIVE: CASE EVENT DATE: 201611
